FAERS Safety Report 4981785-2 (Version None)
Quarter: 2006Q2

REPORT INFORMATION
  Report Type: 
  Country: None (occurrence: None)
  Receive Date: 20060425
  Receipt Date: 20060420
  Transmission Date: 20061013
  Serious: Yes (Hospitalization, Other)
  Sender: FDA-Public Use
  Company Number: US-GLAXOSMITHKLINE-A0602655A

PATIENT

DRUGS (3)
  1. EPZICOM [Suspect]
     Indication: HIV INFECTION
     Route: 048
     Dates: start: 20060401, end: 20060401
  2. LEXIVA [Concomitant]
  3. RITONAVIR [Concomitant]

REACTIONS (1)
  - HEPATOTOXICITY [None]
